FAERS Safety Report 23928861 (Version 1)
Quarter: 2024Q2

REPORT INFORMATION
  Report Type: Spontaneous
  Country: US (occurrence: US)
  Receive Date: 20240531
  Receipt Date: 20240531
  Transmission Date: 20240715
  Serious: No
  Sender: FDA-Public Use
  Company Number: US-RADIUS HEALTH INC.-2024US000890

PATIENT
  Sex: Female
  Weight: 68.481 kg

DRUGS (17)
  1. TYMLOS [Suspect]
     Active Substance: ABALOPARATIDE
     Indication: Illness
     Dosage: 80 MICROGRAM, QD
     Route: 058
     Dates: start: 20231103
  2. CAL-MAG [CALCIUM CARBONATE;MAGNESIUM HYDROXIDE] [Concomitant]
     Indication: Product used for unknown indication
     Dosage: 300-150 MG, UNK
     Route: 048
  3. OSTEO-BI-FLEX [Concomitant]
     Indication: Product used for unknown indication
     Dosage: 1500-400 MG, UNK
     Route: 048
  4. ZINC [Concomitant]
     Active Substance: PYRITHIONE ZINC\ZINC\ZINC CHLORIDE
     Indication: Product used for unknown indication
     Dosage: 220-50 MG, UNK
     Route: 048
  5. MAGNESIUM + VITAMIN D3 WITH TURMERIC [Concomitant]
     Indication: Product used for unknown indication
     Dosage: UNK, UNK
  6. VALTREX [Concomitant]
     Active Substance: VALACYCLOVIR HYDROCHLORIDE
     Indication: Product used for unknown indication
     Dosage: 500 MG, UNK
     Route: 048
  7. HYALURONIC ACID COLLAGEN + AMINO ACIDS [Concomitant]
     Indication: Product used for unknown indication
     Dosage: 125-740 MG, UNK
     Route: 048
  8. MENAQUINONE 6 [Concomitant]
     Active Substance: MENAQUINONE 6
     Indication: Product used for unknown indication
     Dosage: 40 MCG, UNK
     Route: 048
  9. VITAMIN D2 [Concomitant]
     Active Substance: ERGOCALCIFEROL
     Indication: Product used for unknown indication
     Dosage: 1250 MCG, UNK
     Route: 048
  10. ZOLPIDEM TARTRATE [Concomitant]
     Active Substance: ZOLPIDEM TARTRATE
     Indication: Product used for unknown indication
     Dosage: 10 MG, UNK
     Route: 048
  11. FROVATRIPTAN SUCCINATE [Concomitant]
     Active Substance: FROVATRIPTAN SUCCINATE
     Indication: Product used for unknown indication
  12. DIAZEPAM [Concomitant]
     Active Substance: DIAZEPAM
     Indication: Product used for unknown indication
     Dosage: 5 MG, UNK
     Route: 048
  13. ESCITALOPRAM OXALATE [Concomitant]
     Active Substance: ESCITALOPRAM OXALATE
     Indication: Product used for unknown indication
     Dosage: 10 MG, UNK
     Route: 048
  14. HYDROCODONE BITARTRATE AND ACETAMINOPHEN [Concomitant]
     Active Substance: ACETAMINOPHEN\HYDROCODONE BITARTRATE
     Indication: Product used for unknown indication
     Dosage: UNK, UNK
  15. TRAMADOL HCL [Concomitant]
     Active Substance: TRAMADOL HYDROCHLORIDE
     Indication: Product used for unknown indication
     Dosage: 50 MG, UNK
     Route: 048
  16. MELOXICAM [Concomitant]
     Active Substance: MELOXICAM
     Indication: Product used for unknown indication
     Dosage: 15 MG, UNK
     Route: 048
  17. BIOST [Concomitant]
     Indication: Product used for unknown indication
     Dosage: UNK, UNK

REACTIONS (12)
  - Stomatitis [Unknown]
  - Mouth haemorrhage [Unknown]
  - Hair texture abnormal [Unknown]
  - Trichorrhexis [Unknown]
  - Nail disorder [Unknown]
  - Confusional state [Unknown]
  - Disturbance in attention [Unknown]
  - Blood cholesterol increased [Unknown]
  - Injection site pain [Unknown]
  - Headache [Unknown]
  - Fatigue [Unknown]
  - Muscle spasms [Unknown]
